FAERS Safety Report 8246605-1 (Version None)
Quarter: 2012Q1

REPORT INFORMATION
  Report Type: 
  Country: None (occurrence: None)
  Receive Date: 20120330
  Receipt Date: 20120320
  Transmission Date: 20120608
  Serious: Yes (Other)
  Sender: FDA-Public Use
  Company Number: VE-PFIZER INC-2012078529

PATIENT
  Age: 63 Year
  Sex: Female
  Weight: 74 kg

DRUGS (2)
  1. SODIUM PHOSPHATES [Concomitant]
     Indication: BOWEL PREPARATION
     Dosage: 100 ML, UNK
     Route: 048
     Dates: start: 20120319, end: 20120319
  2. PANTOPRAZOLE [Suspect]
     Indication: ABDOMINAL PAIN UPPER
     Dosage: 40 MG, UNK
     Route: 042
     Dates: start: 20120320, end: 20120320

REACTIONS (5)
  - HEADACHE [None]
  - PRURITUS [None]
  - DIARRHOEA [None]
  - CHILLS [None]
  - RASH [None]
